FAERS Safety Report 7171612-X (Version None)
Quarter: 2010Q4

REPORT INFORMATION
  Report Type: 
  Country: None (occurrence: None)
  Receive Date: 20101217
  Receipt Date: 20101214
  Transmission Date: 20110411
  Serious: Yes (Hospitalization, Other)
  Sender: FDA-Public Use
  Company Number: CA-ABBOTT-06P-028-0324507-00

PATIENT
  Sex: Female
  Weight: 63.56 kg

DRUGS (2)
  1. BIAXIN [Suspect]
     Indication: BRONCHITIS
     Dates: start: 20050903
  2. BIAXIN [Suspect]
     Route: 048
     Dates: start: 20051201

REACTIONS (10)
  - ABNORMAL BEHAVIOUR [None]
  - AGGRESSION [None]
  - BIPOLAR DISORDER [None]
  - BRONCHITIS [None]
  - CONDITION AGGRAVATED [None]
  - DELIRIUM [None]
  - DISINHIBITION [None]
  - HYPOMANIA [None]
  - INSOMNIA [None]
  - PSYCHOTIC DISORDER [None]
